FAERS Safety Report 9542442 (Version 1)
Quarter: 2013Q2

REPORT INFORMATION
  Report Type: Spontaneous
  Country: US (occurrence: None)
  Receive Date: 20130524
  Receipt Date: 20130524
  Transmission Date: 20140414
  Serious: No
  Sender: FDA-Public Use
  Company Number: PHEH2013US002068

PATIENT
  Age: 58 Year
  Sex: Female

DRUGS (1)
  1. GILENYA ( FINGOLIMOD) CAPSULE, 0.5 MG [Suspect]
     Indication: MULTIPLE SCLEROSIS
     Route: 048
     Dates: start: 20110907

REACTIONS (12)
  - Blood cholesterol increased [None]
  - Onychomadesis [None]
  - Nail discolouration [None]
  - Low density lipoprotein increased [None]
  - Feeling abnormal [None]
  - Nail disorder [None]
  - Fatigue [None]
  - Somnolence [None]
  - Blood pressure increased [None]
  - Blood triglycerides increased [None]
  - Upper respiratory tract infection [None]
  - White blood cell count decreased [None]
